FAERS Safety Report 5603358-0 (Version None)
Quarter: 2008Q1

REPORT INFORMATION
  Report Type: 
  Country: None (occurrence: None)
  Receive Date: 20080122
  Receipt Date: 20080111
  Transmission Date: 20080703
  Serious: Yes (Hospitalization)
  Sender: FDA-Public Use
  Company Number: GXKR2008NL00827

PATIENT
  Age: 64 Year
  Sex: Male
  Weight: 90 kg

DRUGS (3)
  1. SIMVASTATIN [Suspect]
     Indication: HYPERCHOLESTEROLAEMIA
     Dosage: 20 MG/DAY, ORAL
     Route: 048
     Dates: start: 20060316
  2. ACETYLSALICYLIC ACID (ACETYLSALICYLIC ACID) DISPERSIBLE TABLET [Concomitant]
  3. AMLODIPINE MALEATE (AMLODIPINE MALEATE) TABLET [Concomitant]

REACTIONS (1)
  - PULMONARY FIBROSIS [None]
